FAERS Safety Report 6464026-9 (Version None)
Quarter: 2009Q4

REPORT INFORMATION
  Report Type: 
  Country: None (occurrence: None)
  Receive Date: 20091110
  Receipt Date: 20091012
  Transmission Date: 20100525
  Serious: No
  Sender: FDA-Public Use
  Company Number: 1000009407

PATIENT
  Age: 74 Year
  Sex: Female

DRUGS (7)
  1. SAVELLA [Suspect]
     Indication: NEUROPATHY PERIPHERAL
     Dosage: 12.5 MG (12.5 MG, 1 IN 1 D), ORAL; 25 MG (12.5 MG, 2 IN 1 ),ORAL
     Route: 048
     Dates: start: 20091007, end: 20091008
  2. SAVELLA [Suspect]
     Indication: NEUROPATHY PERIPHERAL
     Dosage: 12.5 MG (12.5 MG, 1 IN 1 D), ORAL; 25 MG (12.5 MG, 2 IN 1 ),ORAL
     Route: 048
     Dates: start: 20091009
  3. LIPITOR [Concomitant]
  4. LISINOPRIL [Concomitant]
  5. HYDROCHLOROTHIAZIDE [Concomitant]
  6. FENTANYL (75 MICROGRAM, TRANSDERMAL) [Concomitant]
  7. ASPIRIN (81 MILLIGRAM) [Concomitant]

REACTIONS (1)
  - HYPERHIDROSIS [None]
